FAERS Safety Report 10897085 (Version 3)
Quarter: 2016Q1

REPORT INFORMATION
  Report Type: Spontaneous
  Country: US (occurrence: US)
  Receive Date: 20150309
  Receipt Date: 20160216
  Transmission Date: 20160525
  Serious: Yes (Other)
  Sender: FDA-Public Use
  Company Number: US-PFIZER INC-2015079701

PATIENT
  Sex: Female

DRUGS (1)
  1. LYRICA [Suspect]
     Active Substance: PREGABALIN
     Dosage: UNK

REACTIONS (10)
  - Cardiac disorder [Unknown]
  - Insomnia [Unknown]
  - Malaise [Unknown]
  - Activities of daily living impaired [Unknown]
  - Vomiting [Unknown]
  - Feeding disorder [Unknown]
  - Apparent death [Unknown]
  - Bedridden [Unknown]
  - Feeling abnormal [Unknown]
  - Hot flush [Unknown]
